FAERS Safety Report 5146588-7 (Version None)
Quarter: 2006Q4

REPORT INFORMATION
  Report Type: 
  Country: None (occurrence: None)
  Receive Date: 20060911
  Receipt Date: 20060711
  Transmission Date: 20070319
  Serious: No
  Sender: FDA-Public Use
  Company Number: IND-AE-06-SAN-030

PATIENT
  Age: 34 Year
  Sex: Female

DRUGS (1)
  1. SANCTURA [Suspect]
     Indication: DRUG USE FOR UNKNOWN INDICATION
     Dosage: -UNK

REACTIONS (1)
  - DRUG INEFFECTIVE [None]
